FAERS Safety Report 4969336-X (Version None)
Quarter: 2006Q2

REPORT INFORMATION
  Report Type: 
  Country: None (occurrence: None)
  Receive Date: 20060405
  Receipt Date: 20060327
  Transmission Date: 20061013
  Serious: No
  Sender: FDA-Public Use
  Company Number: 002#2#2006-00084

PATIENT
  Age: 61 Year
  Sex: Female
  Weight: 61.6892 kg

DRUGS (3)
  1. GLYCOLAX [Suspect]
     Indication: COLONOSCOPY
     Dosage: IN 1 ONCE, ORAL
     Route: 048
     Dates: start: 20060201, end: 20060201
  2. SIMVASTATIN [Concomitant]
  3. HYDROCHLOROTHIAZIDE [Concomitant]

REACTIONS (8)
  - DIVERTICULITIS [None]
  - DIZZINESS [None]
  - FALL [None]
  - HEAD INJURY [None]
  - LOSS OF CONSCIOUSNESS [None]
  - NAUSEA [None]
  - TOOTH FRACTURE [None]
  - WOUND HAEMORRHAGE [None]
